FAERS Safety Report 10257502 (Version 1)
Quarter: 2014Q2

REPORT INFORMATION
  Report Type: Spontaneous
  Country: US (occurrence: US)
  Receive Date: 20140625
  Receipt Date: 20140625
  Transmission Date: 20141212
  Serious: No
  Sender: FDA-Public Use
  Company Number: US-GLAXOSMITHKLINE-A1048364A

PATIENT
  Sex: Female

DRUGS (3)
  1. VERAMYST [Suspect]
     Indication: MULTIPLE ALLERGIES
     Route: 065
     Dates: start: 20090219
  2. ADVAIR HFA [Suspect]
     Indication: MULTIPLE ALLERGIES
     Route: 065
     Dates: start: 20090219
  3. VENTOLIN [Suspect]
     Indication: MULTIPLE ALLERGIES
     Route: 065
     Dates: start: 20090219

REACTIONS (1)
  - Epistaxis [Unknown]
